FAERS Safety Report 4298008-2 (Version None)
Quarter: 2004Q1

REPORT INFORMATION
  Report Type: 
  Country: None (occurrence: None)
  Receive Date: 20040218
  Receipt Date: 20011002
  Transmission Date: 20041129
  Serious: Yes (Other)
  Sender: FDA-Public Use
  Company Number: US-BRISTOL-MYERS SQUIBB COMPANY-11041621

PATIENT
  Sex: Female

DRUGS (12)
  1. STADOL [Suspect]
     Route: 045
     Dates: start: 19941010
  2. STADOL [Suspect]
     Dosage: ROUTE OF ADMINISTRATION:  INJECTION
  3. HYDROCODONE + ACETAMINOPHEN [Concomitant]
  4. TRAZODONE HCL [Concomitant]
  5. AMBIEN [Concomitant]
  6. PROMETHAZINE [Concomitant]
  7. BUTALBITAL+APAP+CAFFEINE [Concomitant]
  8. ULTRAM [Concomitant]
  9. LORAZEPAM [Concomitant]
  10. REMERON [Concomitant]
  11. RANITIDINE [Concomitant]
  12. VICODIN [Concomitant]

REACTIONS (1)
  - DEPENDENCE [None]
